FAERS Safety Report 21191781 (Version 1)
Quarter: 2022Q3

REPORT INFORMATION
  Report Type: Other
  Country: CN (occurrence: None)
  Receive Date: 20220809
  Receipt Date: 20220809
  Transmission Date: 20221027
  Serious: Yes (Other)
  Sender: FDA-Public Use
  Company Number: CN-ROCHE-3156441

PATIENT
  Age: 81 Year
  Sex: Male

DRUGS (2)
  1. RITUXIMAB [Suspect]
     Active Substance: RITUXIMAB
     Indication: B-cell lymphoma
     Dosage: INTRAVENOUS CONTINUOUS INFUSION FOR 4 ~ 6 H, EVERY 28 DAYS AS ONE CYCLE
     Route: 042
  2. BENDAMUSTINE [Suspect]
     Active Substance: BENDAMUSTINE
     Indication: B-cell lymphoma
     Dosage: FOR DAY1-2, INTRAVENOUS INFUSION IS GIVEN FOR 30 TO 60 MINUTES
     Route: 041

REACTIONS (3)
  - Pneumocystis jirovecii pneumonia [Recovered/Resolved]
  - Off label use [Unknown]
  - Off label use [Unknown]
